FAERS Safety Report 9798977 (Version 1)
Quarter: 2013Q4

REPORT INFORMATION
  Report Type: Spontaneous
  Country: FR (occurrence: None)
  Receive Date: 20131231
  Receipt Date: 20131231
  Transmission Date: 20140711
  Serious: Yes (Hospitalization)
  Sender: FDA-Public Use
  Company Number: AUR-APL-2013-10714

PATIENT
  Age: 51 Year
  Sex: Female

DRUGS (13)
  1. SIMVASTATIN (SIMVASTATIN) [Suspect]
     Indication: PRODUCT USED FOR UNKNOWN INDICATION
     Route: 048
     Dates: end: 201311
  2. BISOPROLOL (BISOPROLOL) [Suspect]
     Indication: PRODUCT USED FOR UNKNOWN INDICATION
     Route: 048
     Dates: start: 20131004, end: 201311
  3. AMLOR (AMLODIPINE BESILATE) [Suspect]
     Indication: PRODUCT USED FOR UNKNOWN INDICATION
     Route: 048
     Dates: start: 20131004, end: 201311
  4. FUROSEMIDE [Concomitant]
  5. METFORMIN [Concomitant]
  6. STILNOX (ZOLPIDEM TARTRATE) [Concomitant]
  7. LEVOTHYROX (LEVOTHYROXINE SODIUM) [Concomitant]
  8. PREVISCAN (PENTOXIFYLLINE) [Concomitant]
  9. KERLONE (BETAXOLOL HYDROCHLORIDE) [Concomitant]
  10. FLOLAN (EPOPROSTENOL SODIUM) [Concomitant]
  11. REVATIO (SILDENAFIL CITRATE) [Concomitant]
  12. TRACLEER (BOSENTAN) [Concomitant]
  13. SPIRONOLACTONE (SPIRONOLACTONE) [Concomitant]

REACTIONS (1)
  - Rash maculo-papular [None]
